FAERS Safety Report 10064126 (Version 1)
Quarter: 2013Q4

REPORT INFORMATION
  Report Type: Spontaneous
  Country: US (occurrence: None)
  Receive Date: 20131115
  Receipt Date: 20131115
  Transmission Date: 20140711
  Serious: Yes (Other)
  Sender: FDA-Public Use
  Company Number: 99597

PATIENT
  Age: 44 Year
  Sex: Male
  Weight: 90.72 kg

DRUGS (1)
  1. MENTHOLATUM PAIN RELIEF MUSCLE RUB [Suspect]
     Indication: ANALGESIC THERAPY
     Route: 061
     Dates: start: 20131025

REACTIONS (2)
  - Erythema [None]
  - Chemical burn of skin [None]
